FAERS Safety Report 8083752-1 (Version None)
Quarter: 2012Q1

REPORT INFORMATION
  Report Type: 
  Country: None (occurrence: None)
  Receive Date: 20120127
  Receipt Date: 20110124
  Transmission Date: 20120608
  Serious: No
  Sender: FDA-Public Use
  Company Number: US-ABBOTT-11P-163-0700197-00

PATIENT
  Age: 69 Year
  Sex: Female

DRUGS (5)
  1. OXYBUTYNIN [Concomitant]
     Indication: BLADDER DISORDER
  2. HUMIRA [Suspect]
     Indication: PSORIATIC ARTHROPATHY
  3. CLONIDINE [Concomitant]
     Indication: BLOOD PRESSURE ABNORMAL
     Dosage: 0.1MG
  4. PRAVASTATIN [Concomitant]
     Indication: BLOOD CHOLESTEROL ABNORMAL
     Dosage: 10MG DAILY
  5. FORTICAL [Concomitant]
     Indication: BONE DISORDER
     Dosage: NASAL SPRAY DAILY

REACTIONS (8)
  - EYE IRRITATION [None]
  - RASH [None]
  - VISUAL IMPAIRMENT [None]
  - VISION BLURRED [None]
  - RASH ERYTHEMATOUS [None]
  - PAIN [None]
  - PRURITUS [None]
  - EYE PAIN [None]
